FAERS Safety Report 9938584 (Version 1)
Quarter: 2014Q1

REPORT INFORMATION
  Report Type: Spontaneous
  Country: US (occurrence: US)
  Receive Date: 20140303
  Receipt Date: 20140303
  Transmission Date: 20141002
  Serious: Yes (Other)
  Sender: FDA-Public Use
  Company Number: US-BAYER-2014-028420

PATIENT
  Age: 29 Year
  Sex: Female

DRUGS (1)
  1. MIRENA [Suspect]
     Indication: CONTRACEPTION
     Dosage: UNK
     Route: 015
     Dates: start: 200904

REACTIONS (9)
  - Genital haemorrhage [None]
  - Abdominal pain lower [None]
  - Device expulsion [None]
  - Dizziness [None]
  - Mood altered [None]
  - Irritability [None]
  - Device issue [None]
  - Oligomenorrhoea [None]
  - Hypomenorrhoea [None]
